FAERS Safety Report 13113323 (Version 3)
Quarter: 2017Q1

REPORT INFORMATION
  Report Type: Report from Study
  Country: ES (occurrence: ES)
  Receive Date: 20170113
  Receipt Date: 20170124
  Transmission Date: 20170428
  Serious: Yes (Hospitalization)
  Sender: FDA-Public Use
  Company Number: ES-PFIZER INC-2017008998

PATIENT
  Age: 87 Year
  Sex: Female

DRUGS (8)
  1. EPLERENONA PHARMACIA [Suspect]
     Active Substance: EPLERENONE
     Dosage: 25 MG, 1X/DAY (1-0-0)
     Route: 048
     Dates: start: 20150725, end: 20150823
  2. DOXAZOSINA NEO [Interacting]
     Active Substance: DOXAZOSIN MESYLATE
     Indication: HYPERTENSION
     Dosage: 4 MG, 1X/DAY (0-0-1)
     Route: 048
     Dates: start: 20150725, end: 20150823
  3. NATECAL D [Concomitant]
     Active Substance: CALCIUM CARBONATE\CHOLECALCIFEROL
     Dosage: UNK , 1X/DAY (1-0-0)
     Route: 048
     Dates: start: 20150725
  4. OPENVAS PLUS [Interacting]
     Active Substance: HYDROCHLOROTHIAZIDE\OLMESARTAN MEDOXOMIL
     Indication: HYPERTENSION
     Dosage: 20 MG/25 MG, 1X/DAY (1-0-0)
     Route: 048
     Dates: start: 20150725, end: 20150823
  5. OMEPRAZOL [Concomitant]
     Active Substance: OMEPRAZOLE
     Dosage: 1 DF, UNK
     Route: 048
     Dates: start: 20150725
  6. ARIMIDEX [Concomitant]
     Active Substance: ANASTROZOLE
     Dosage: UNK , 1X/DAY (1-0-0)
     Route: 048
     Dates: start: 20140413
  7. METFORMIN [Concomitant]
     Active Substance: METFORMIN HYDROCHLORIDE
     Dosage: UNK, 2X/DAY (1/2-0-1/2)
     Route: 048
     Dates: start: 20150725
  8. SINTROM [Concomitant]
     Active Substance: ACENOCOUMAROL
     Dosage: SP (ACCORDING TO DOSING REGIMEN)
     Route: 048
     Dates: start: 20150725

REACTIONS (2)
  - Drug interaction [Recovered/Resolved]
  - Ischaemic hepatitis [Recovered/Resolved]

NARRATIVE: CASE EVENT DATE: 20150823
